FAERS Safety Report 8061614-3 (Version None)
Quarter: 2012Q1

REPORT INFORMATION
  Report Type: 
  Country: None (occurrence: None)
  Receive Date: 20120123
  Receipt Date: 20120111
  Transmission Date: 20120608
  Serious: Yes (Disabling)
  Sender: FDA-Public Use
  Company Number: GB-AMGEN-GBRSP2012003090

PATIENT
  Age: 28 Year
  Sex: Male

DRUGS (3)
  1. LANSOPRAZOLE [Concomitant]
     Dosage: 30 MG, UNK
     Route: 048
  2. DICLOFENAC [Concomitant]
     Indication: ANKYLOSING SPONDYLITIS
     Dosage: 75 MG, UNK
     Route: 048
  3. ENBREL [Suspect]
     Indication: ANKYLOSING SPONDYLITIS
     Dosage: 50 MG, UNK
     Route: 058
     Dates: start: 20091019

REACTIONS (1)
  - ACUTE MYELOID LEUKAEMIA [None]
